FAERS Safety Report 24032447 (Version 1)
Quarter: 2024Q3

REPORT INFORMATION
  Report Type: Spontaneous
  Country: GR (occurrence: GR)
  Receive Date: 20240701
  Receipt Date: 20240701
  Transmission Date: 20241017
  Serious: Yes (Life-Threatening, Hospitalization)
  Sender: Steriscience PTE
  Company Number: GR-STERISCIENCE B.V.-2024-ST-000892

PATIENT

DRUGS (9)
  1. MEROPENEM [Suspect]
     Active Substance: MEROPENEM
     Indication: Klebsiella infection
     Dosage: UNK
     Route: 065
  2. AVIBACTAM SODIUM\CEFTAZIDIME [Suspect]
     Active Substance: AVIBACTAM SODIUM\CEFTAZIDIME
     Indication: Klebsiella infection
     Dosage: 31 MILLIGRAM/KILOGRAM/DAY, EVERY 8 H REDUCED DOSE
     Route: 065
  3. AVIBACTAM SODIUM\CEFTAZIDIME [Suspect]
     Active Substance: AVIBACTAM SODIUM\CEFTAZIDIME
     Indication: Sepsis
  4. DAPTOMYCIN [Suspect]
     Active Substance: DAPTOMYCIN
     Indication: Klebsiella infection
     Dosage: 10 MILLIGRAM/KILOGRAM/DAY
     Route: 065
  5. COLISTIN [Concomitant]
     Active Substance: COLISTIN
     Indication: Sepsis
     Dosage: RECEIVED EVERY 8 HOURS
     Route: 065
  6. COLISTIN [Concomitant]
     Active Substance: COLISTIN
     Indication: Prophylaxis
  7. TIGECYCLINE [Concomitant]
     Active Substance: TIGECYCLINE
     Indication: Sepsis
     Dosage: 2 MILLIGRAM/KILOGRAM/DAY, EVERY 12 H
     Route: 065
  8. TIGECYCLINE [Concomitant]
     Active Substance: TIGECYCLINE
     Indication: Prophylaxis
  9. TIGECYCLINE [Concomitant]
     Active Substance: TIGECYCLINE
     Indication: Klebsiella infection

REACTIONS (2)
  - Condition aggravated [Unknown]
  - Drug ineffective [Unknown]
